FAERS Safety Report 4380572-6 (Version None)
Quarter: 2004Q2

REPORT INFORMATION
  Report Type: 
  Country: None (occurrence: None)
  Receive Date: 20040615
  Receipt Date: 20031119
  Transmission Date: 20050107
  Serious: Yes (Hospitalization)
  Sender: FDA-Public Use
  Company Number: 2003US005720

PATIENT
  Sex: Male

DRUGS (3)
  1. PROGRAF [Suspect]
     Indication: RENAL TRANSPLANT
  2. CELLCEPT [Concomitant]
  3. PREDNISONE TAB [Concomitant]

REACTIONS (2)
  - DRUG LEVEL INCREASED [None]
  - PANCREATITIS [None]
